FAERS Safety Report 6466078-9 (Version None)
Quarter: 2009Q4

REPORT INFORMATION
  Report Type: 
  Country: None (occurrence: None)
  Receive Date: 20091127
  Receipt Date: 20091119
  Transmission Date: 20100525
  Serious: Yes (Death)
  Sender: FDA-Public Use
  Company Number: DSA_33741_2009

PATIENT
  Sex: Male
  Weight: 60 kg

DRUGS (20)
  1. XENAZINE [Suspect]
     Indication: HUNTINGTON'S CHOREA
     Dosage: SEE IMAGE
     Route: 048
     Dates: start: 20090101, end: 20090101
  2. XENAZINE [Suspect]
     Indication: MOVEMENT DISORDER
     Dosage: SEE IMAGE
     Route: 048
     Dates: start: 20090101, end: 20090101
  3. XENAZINE [Suspect]
     Indication: PRIMARY CEREBELLAR DEGENERATION
     Dosage: SEE IMAGE
     Route: 048
     Dates: start: 20090101, end: 20090101
  4. XENAZINE [Suspect]
     Indication: HUNTINGTON'S CHOREA
     Dosage: SEE IMAGE
     Route: 048
     Dates: start: 20090528, end: 20090101
  5. XENAZINE [Suspect]
     Indication: MOVEMENT DISORDER
     Dosage: SEE IMAGE
     Route: 048
     Dates: start: 20090528, end: 20090101
  6. XENAZINE [Suspect]
     Indication: PRIMARY CEREBELLAR DEGENERATION
     Dosage: SEE IMAGE
     Route: 048
     Dates: start: 20090528, end: 20090101
  7. XENAZINE [Suspect]
     Indication: HUNTINGTON'S CHOREA
     Dosage: SEE IMAGE
     Route: 048
     Dates: start: 20040101, end: 20090301
  8. XENAZINE [Suspect]
     Indication: MOVEMENT DISORDER
     Dosage: SEE IMAGE
     Route: 048
     Dates: start: 20040101, end: 20090301
  9. XENAZINE [Suspect]
     Indication: PRIMARY CEREBELLAR DEGENERATION
     Dosage: SEE IMAGE
     Route: 048
     Dates: start: 20040101, end: 20090301
  10. XENAZINE [Suspect]
     Indication: HUNTINGTON'S CHOREA
     Dosage: SEE IMAGE
     Route: 048
     Dates: start: 20090301, end: 20090527
  11. XENAZINE [Suspect]
     Indication: MOVEMENT DISORDER
     Dosage: SEE IMAGE
     Route: 048
     Dates: start: 20090301, end: 20090527
  12. XENAZINE [Suspect]
     Indication: PRIMARY CEREBELLAR DEGENERATION
     Dosage: SEE IMAGE
     Route: 048
     Dates: start: 20090301, end: 20090527
  13. XENAZINE [Suspect]
     Indication: HUNTINGTON'S CHOREA
     Dosage: SEE IMAGE
     Route: 048
     Dates: start: 20090101
  14. XENAZINE [Suspect]
     Indication: MOVEMENT DISORDER
     Dosage: SEE IMAGE
     Route: 048
     Dates: start: 20090101
  15. XENAZINE [Suspect]
     Indication: PRIMARY CEREBELLAR DEGENERATION
     Dosage: SEE IMAGE
     Route: 048
     Dates: start: 20090101
  16. METOPROLOL [Concomitant]
  17. FLOMAX /01280302/ [Concomitant]
  18. LISINOPRIL [Concomitant]
  19. LASIX [Concomitant]
  20. HUMALOG [Concomitant]

REACTIONS (1)
  - SOMNOLENCE [None]
